FAERS Safety Report 25172755 (Version 1)
Quarter: 2025Q2

REPORT INFORMATION
  Report Type: Report from Study
  Country: US (occurrence: US)
  Receive Date: 20250408
  Receipt Date: 20250408
  Transmission Date: 20250716
  Serious: No
  Sender: SANDOZ
  Company Number: US-SANDOZ-SDZ2024US003828

PATIENT
  Sex: Male

DRUGS (4)
  1. OMNITROPE [Suspect]
     Active Substance: SOMATROPIN
     Route: 065
  2. OMNITROPE [Suspect]
     Active Substance: SOMATROPIN
     Route: 065
  3. OMNITROPE [Suspect]
     Active Substance: SOMATROPIN
     Indication: Short stature
     Dosage: 2.8 MG QD
     Route: 058
  4. OMNITROPE [Suspect]
     Active Substance: SOMATROPIN
     Indication: Short stature
     Dosage: 2.8 MG QD
     Route: 058

REACTIONS (3)
  - Blister [Recovering/Resolving]
  - Incorrect dose administered [Unknown]
  - Device issue [Unknown]
